FAERS Safety Report 11720185 (Version 1)
Quarter: 2015Q4

REPORT INFORMATION
  Report Type: Spontaneous
  Country: US (occurrence: US)
  Receive Date: 20151110
  Receipt Date: 20151110
  Transmission Date: 20160304
  Serious: Yes (Other)
  Sender: FDA-Public Use
  Company Number: US-CELGENE-USA-2015110361

PATIENT
  Age: 75 Year
  Sex: Male
  Weight: 70.37 kg

DRUGS (5)
  1. ARANESP [Concomitant]
     Active Substance: DARBEPOETIN ALFA
     Indication: WHITE BLOOD CELL COUNT
     Route: 065
  2. RITUXAN [Concomitant]
     Active Substance: RITUXIMAB
     Indication: PRODUCT USED FOR UNKNOWN INDICATION
     Route: 065
     Dates: end: 20151020
  3. REVLIMID [Suspect]
     Active Substance: LENALIDOMIDE
     Indication: MYELODYSPLASTIC SYNDROME
     Route: 048
     Dates: start: 201401
  4. REVLIMID [Suspect]
     Active Substance: LENALIDOMIDE
     Route: 048
     Dates: start: 201504
  5. DEXAMETHASONE. [Concomitant]
     Active Substance: DEXAMETHASONE
     Indication: MYELODYSPLASTIC SYNDROME
     Dosage: 10PILLS
     Route: 065

REACTIONS (2)
  - Pancreatic carcinoma [Not Recovered/Not Resolved]
  - Cough [Not Recovered/Not Resolved]

NARRATIVE: CASE EVENT DATE: 201406
